FAERS Safety Report 18682906 (Version 1)
Quarter: 2020Q4

REPORT INFORMATION
  Report Type: Report from Study
  Country: US (occurrence: US)
  Receive Date: 20201230
  Receipt Date: 20201230
  Transmission Date: 20210114
  Serious: Yes (Hospitalization)
  Sender: FDA-Public Use
  Company Number: US-MYLANLABS-2020M1104707

PATIENT
  Age: 67 Year
  Sex: Female

DRUGS (1)
  1. DOXORUBICIN [Suspect]
     Active Substance: DOXORUBICIN
     Indication: OVARIAN CANCER RECURRENT
     Route: 065

REACTIONS (2)
  - Second primary malignancy [Recovering/Resolving]
  - Squamous cell carcinoma of the oral cavity [Recovering/Resolving]
